FAERS Safety Report 18816589 (Version 4)
Quarter: 2021Q3

REPORT INFORMATION
  Report Type: Other
  Country: BE (occurrence: BE)
  Receive Date: 20210201
  Receipt Date: 20210721
  Transmission Date: 20211014
  Serious: No
  Sender: FDA-Public Use
  Company Number: BE-ROCHE-2757087

PATIENT
  Age: 38 Year
  Sex: Female

DRUGS (20)
  1. SEDISTRESS [Concomitant]
     Indication: ANXIETY
     Route: 048
     Dates: start: 201806
  2. SOLU?MEDROL [Concomitant]
     Active Substance: METHYLPREDNISOLONE SODIUM SUCCINATE
     Route: 042
     Dates: start: 20210503, end: 20210503
  3. CETIRIZINE [Concomitant]
     Active Substance: CETIRIZINE HYDROCHLORIDE
     Dosage: PILL?AS REQUIRED
     Route: 048
     Dates: start: 20190918, end: 20190925
  4. BETMIGA [Concomitant]
     Active Substance: MIRABEGRON
     Route: 048
     Dates: start: 201310
  5. CETIRIZINE [Concomitant]
     Active Substance: CETIRIZINE HYDROCHLORIDE
     Route: 048
     Dates: start: 20201102, end: 20201102
  6. CETIRIZINE [Concomitant]
     Active Substance: CETIRIZINE HYDROCHLORIDE
     Indication: PREMEDICATION
     Dosage: SUBSEQUENT DOSE: 01/OCT/2019, 21/APR/2020, 02/NOV/2020
     Route: 048
     Dates: start: 20190917
  7. DAFALGAN [Concomitant]
     Active Substance: ACETAMINOPHEN
     Indication: PREMEDICATION
     Dosage: SUBSEQUENT DOSE: 01/OCT/2019, 21/APR/2020, 02/NOV/2020
     Route: 048
     Dates: start: 20190917, end: 20190917
  8. OCRELIZUMAB. [Suspect]
     Active Substance: OCRELIZUMAB
     Dosage: 300 MG/ 250 ML?VISIT 3
     Route: 042
     Dates: start: 20191001, end: 20191001
  9. FLUOXETINE [Concomitant]
     Active Substance: FLUOXETINE HYDROCHLORIDE
     Indication: ANXIETY
     Route: 048
     Dates: start: 201806
  10. SOLU?MEDROL [Concomitant]
     Active Substance: METHYLPREDNISOLONE SODIUM SUCCINATE
     Indication: PREMEDICATION
     Dosage: SUBSEQUENT DOSE: 01/OCT/2019, 21/APR/2020, 02/NOV/2020
     Route: 042
     Dates: start: 20190917, end: 20190917
  11. OCRELIZUMAB. [Suspect]
     Active Substance: OCRELIZUMAB
     Dosage: DOSE: 600 MG/ 500 ML?VISIT 5
     Route: 042
     Dates: start: 20201102, end: 20201102
  12. BISOPROLOL [Concomitant]
     Active Substance: BISOPROLOL
     Indication: MIGRAINE
     Route: 048
     Dates: start: 201501
  13. SOLU?MEDROL [Concomitant]
     Active Substance: METHYLPREDNISOLONE SODIUM SUCCINATE
     Route: 042
     Dates: start: 20201102, end: 20201102
  14. CETIRIZINE [Concomitant]
     Active Substance: CETIRIZINE HYDROCHLORIDE
     Route: 048
     Dates: start: 20210503, end: 20210503
  15. DAFALGAN [Concomitant]
     Active Substance: ACETAMINOPHEN
     Route: 048
     Dates: start: 20201102, end: 20201102
  16. OCRELIZUMAB. [Suspect]
     Active Substance: OCRELIZUMAB
     Indication: MULTIPLE SCLEROSIS
     Dosage: 300 MG/ 250 ML?VISIT 2
     Route: 042
     Dates: start: 20190917, end: 20190917
  17. OCRELIZUMAB. [Suspect]
     Active Substance: OCRELIZUMAB
     Dosage: DOSE: 600 MG/ 500 ML?VISIT 4
     Route: 042
     Dates: start: 20200421, end: 20200421
  18. TRAZODONE [Concomitant]
     Active Substance: TRAZODONE HYDROCHLORIDE
     Indication: ANXIETY
     Route: 048
     Dates: start: 201806
  19. DAFALGAN [Concomitant]
     Active Substance: ACETAMINOPHEN
     Indication: URINARY TRACT INFECTION
     Route: 048
     Dates: start: 20190918, end: 20190925
  20. DAFALGAN [Concomitant]
     Active Substance: ACETAMINOPHEN
     Route: 048
     Dates: start: 20210503, end: 20210503

REACTIONS (2)
  - Epstein-Barr virus infection [Recovered/Resolved]
  - Fatigue [Recovering/Resolving]

NARRATIVE: CASE EVENT DATE: 20201001
